FAERS Safety Report 10503261 (Version 1)
Quarter: 2014Q4

REPORT INFORMATION
  Report Type: Spontaneous
  Country: JP (occurrence: JP)
  Receive Date: 20141008
  Receipt Date: 20141008
  Transmission Date: 20150528
  Serious: Yes (Other)
  Sender: FDA-Public Use
  Company Number: JP-ROCHE-1468572

PATIENT
  Age: 15 Year
  Sex: Female

DRUGS (5)
  1. ANEXATE [Suspect]
     Active Substance: FLUMAZENIL
     Indication: DROOLING
  2. ANEXATE [Suspect]
     Active Substance: FLUMAZENIL
     Indication: DYSSTASIA
  3. MYSLEE [Suspect]
     Active Substance: ZOLPIDEM TARTRATE
     Indication: INSOMNIA
     Route: 048
  4. ANEXATE [Suspect]
     Active Substance: FLUMAZENIL
     Indication: COORDINATION ABNORMAL
     Route: 065
     Dates: start: 20140925
  5. MYSLEE [Suspect]
     Active Substance: ZOLPIDEM TARTRATE
     Route: 048
     Dates: start: 201409, end: 201409

REACTIONS (5)
  - Off label use [Unknown]
  - Coordination abnormal [Recovered/Resolved]
  - Depressed level of consciousness [Recovered/Resolved]
  - Intentional overdose [Unknown]
  - Drooling [Recovered/Resolved]
